FAERS Safety Report 7403569-8 (Version None)
Quarter: 2011Q2

REPORT INFORMATION
  Report Type: 
  Country: None (occurrence: None)
  Receive Date: 20110408
  Receipt Date: 20110401
  Transmission Date: 20111010
  Serious: Yes (Other)
  Sender: FDA-Public Use
  Company Number: US-PFIZER INC-2011073151

PATIENT
  Sex: Female

DRUGS (9)
  1. TIZANIDINE [Concomitant]
     Dosage: UNK
  2. LYRICA [Concomitant]
  3. XANAX [Concomitant]
  4. AMPYRA [Suspect]
     Indication: PRODUCT USED FOR UNKNOWN INDICATION
     Dosage: 10 MG, 2X/DAY
     Route: 048
     Dates: start: 20100429
  5. GILENYA [Suspect]
     Indication: PRODUCT USED FOR UNKNOWN INDICATION
     Dosage: 0.5 MG, 1X/DAY
  6. KADIAN [Concomitant]
     Dosage: UNK
  7. SOLU-MEDROL [Suspect]
     Indication: MULTIPLE SCLEROSIS
     Dosage: 500 MG EVERY 2 WEEKS
     Route: 042
  8. PERCOCET [Concomitant]
     Dosage: UNK
  9. SANCTURA [Concomitant]

REACTIONS (3)
  - DRUG INTERACTION [None]
  - WHITE BLOOD CELL COUNT DECREASED [None]
  - MUSCLE SPASMS [None]
